FAERS Safety Report 13020591 (Version 15)
Quarter: 2020Q3

REPORT INFORMATION
  Report Type: Report from Study
  Country: US (occurrence: US)
  Receive Date: 20161212
  Receipt Date: 20200928
  Transmission Date: 20201102
  Serious: Yes (Life-Threatening, Hospitalization, Disabling, Other)
  Sender: FDA-Public Use
  Company Number: US-SA-2016SA225096

PATIENT

DRUGS (3)
  1. ALEMTUZUMAB [Suspect]
     Active Substance: ALEMTUZUMAB
     Dosage: 12 MG,QD
     Route: 041
     Dates: start: 20151109, end: 20151113
  2. LISINOPRIL. [Suspect]
     Active Substance: LISINOPRIL
     Dosage: UNK UNK,UNK
     Route: 065
  3. ALEMTUZUMAB [Suspect]
     Active Substance: ALEMTUZUMAB
     Indication: MULTIPLE SCLEROSIS
     Dosage: 12 MG,QD
     Route: 041
     Dates: start: 20161121, end: 20161123

REACTIONS (54)
  - Swelling face [Recovered/Resolved]
  - Autoimmune thyroiditis [Unknown]
  - Paraesthesia [Not Recovered/Not Resolved]
  - Memory impairment [Not Recovered/Not Resolved]
  - Wound [Not Recovered/Not Resolved]
  - Feeding disorder [Unknown]
  - Hypothyroidism [Unknown]
  - Thyrotoxic crisis [Unknown]
  - Dysstasia [Not Recovered/Not Resolved]
  - Dysgraphia [Not Recovered/Not Resolved]
  - Haemoptysis [Unknown]
  - Hyperthyroidism [Recovered/Resolved]
  - Dyspnoea [Recovered/Resolved]
  - Thinking abnormal [Not Recovered/Not Resolved]
  - Condition aggravated [Not Recovered/Not Resolved]
  - Loss of consciousness [Recovered/Resolved]
  - Mobility decreased [Not Recovered/Not Resolved]
  - Irritable bowel syndrome [Unknown]
  - Renal neoplasm [Not Recovered/Not Resolved]
  - Pharyngeal swelling [Recovered/Resolved]
  - Dysphonia [Not Recovered/Not Resolved]
  - Staphylococcal infection [Unknown]
  - Constipation [Recovered/Resolved]
  - Skin irritation [Not Recovered/Not Resolved]
  - Weight bearing difficulty [Not Recovered/Not Resolved]
  - Anaphylactic shock [Recovered/Resolved]
  - Haematemesis [Unknown]
  - Amnesia [Unknown]
  - Asthenia [Unknown]
  - Pruritus [Recovered/Resolved]
  - Burning sensation [Not Recovered/Not Resolved]
  - Cognitive disorder [Not Recovered/Not Resolved]
  - Catheter placement [Not Recovered/Not Resolved]
  - Drug hypersensitivity [Recovered/Resolved]
  - Vomiting [Recovered/Resolved]
  - Multiple sclerosis relapse [Not Recovered/Not Resolved]
  - Injection site bruising [Unknown]
  - Dysphagia [Not Recovered/Not Resolved]
  - Skin discolouration [Not Recovered/Not Resolved]
  - Weight decreased [Unknown]
  - Erythema [Not Recovered/Not Resolved]
  - Heart rate increased [Unknown]
  - Cardiac failure congestive [Not Recovered/Not Resolved]
  - Throat tightness [Unknown]
  - Diarrhoea [Recovered/Resolved]
  - Physical disability [Unknown]
  - Cardiac disorder [Not Recovered/Not Resolved]
  - Livedo reticularis [Not Recovered/Not Resolved]
  - General physical health deterioration [Not Recovered/Not Resolved]
  - Sepsis [Unknown]
  - Kidney infection [Unknown]
  - Cystitis [Recovered/Resolved]
  - Condition aggravated [Not Recovered/Not Resolved]
  - Hypertension [Unknown]

NARRATIVE: CASE EVENT DATE: 2016
